FAERS Safety Report 17652634 (Version 1)
Quarter: 2020Q2

REPORT INFORMATION
  Report Type: Spontaneous
  Country: DE (occurrence: DE)
  Receive Date: 20200409
  Receipt Date: 20200409
  Transmission Date: 20200713
  Serious: Yes (Other)
  Sender: FDA-Public Use
  Company Number: DE-MYLANLABS-2020M1036124

PATIENT
  Sex: Male

DRUGS (1)
  1. VALSARTAN DURA 80 MG FILMTABLETTEN [Suspect]
     Active Substance: VALSARTAN
     Indication: PRODUCT USED FOR UNKNOWN INDICATION
     Dosage: 80 MILLIGRAM, QD
     Route: 048
     Dates: start: 2017

REACTIONS (3)
  - Impaired quality of life [Unknown]
  - Fear of disease [Unknown]
  - Mental impairment [Unknown]
